FAERS Safety Report 7815248-3 (Version None)
Quarter: 2011Q4

REPORT INFORMATION
  Report Type: 
  Country: None (occurrence: None)
  Receive Date: 20111005
  Receipt Date: 20110922
  Transmission Date: 20120403
  Serious: Yes (Hospitalization)
  Sender: FDA-Public Use
  Company Number: US-145247

PATIENT
  Sex: Female

DRUGS (2)
  1. WINRHO [Suspect]
     Indication: IDIOPATHIC THROMBOCYTOPENIC PURPURA
     Dosage: INTRAVENOUS
     Route: 042
     Dates: start: 20101209, end: 20101209
  2. DEPO-PROVERA [Concomitant]

REACTIONS (5)
  - TACHYCARDIA [None]
  - NO REACTION ON PREVIOUS EXPOSURE TO DRUG [None]
  - MALAISE [None]
  - INTRAVASCULAR HAEMOLYSIS [None]
  - LIVER FUNCTION TEST ABNORMAL [None]
